FAERS Safety Report 21513403 (Version 1)
Quarter: 2022Q4

REPORT INFORMATION
  Report Type: Spontaneous
  Country: US (occurrence: US)
  Receive Date: 20221027
  Receipt Date: 20221027
  Transmission Date: 20230112
  Serious: Yes (Other)
  Sender: FDA-Public Use
  Company Number: US-NOVARTISPH-NVSC2022US238775

PATIENT
  Sex: Female

DRUGS (1)
  1. TASIGNA [Suspect]
     Active Substance: NILOTINIB
     Indication: Chronic myeloid leukaemia
     Dosage: 300 MG, QD
     Route: 065

REACTIONS (10)
  - Myocardial infarction [Unknown]
  - Pain in jaw [Unknown]
  - Neck pain [Unknown]
  - Hypoaesthesia [Unknown]
  - Bone pain [Unknown]
  - Muscle spasms [Unknown]
  - Weight increased [Unknown]
  - Dyspepsia [Unknown]
  - Pain in extremity [Unknown]
  - Incorrect dose administered [Unknown]
